FAERS Safety Report 6648115-1 (Version None)
Quarter: 2010Q1

REPORT INFORMATION
  Report Type: 
  Country: None (occurrence: None)
  Receive Date: 20100324
  Receipt Date: 20100311
  Transmission Date: 20100710
  Serious: No
  Sender: FDA-Public Use
  Company Number: US-JNJFOC-20100303993

PATIENT
  Sex: Male

DRUGS (4)
  1. FENTANYL CITRATE [Suspect]
     Indication: PANCREATITIS
     Route: 062
  2. FENTANYL CITRATE [Suspect]
     Indication: PAIN
     Route: 062
  3. FENTANYL CITRATE [Suspect]
     Route: 062
  4. FENTANYL CITRATE [Suspect]
     Route: 062

REACTIONS (4)
  - APPLICATION SITE URTICARIA [None]
  - DRUG INEFFECTIVE [None]
  - HYPERHIDROSIS [None]
  - WRONG TECHNIQUE IN DRUG USAGE PROCESS [None]
